FAERS Safety Report 5497115-6 (Version None)
Quarter: 2007Q4

REPORT INFORMATION
  Report Type: 
  Country: None (occurrence: None)
  Receive Date: 20071023
  Receipt Date: 20071008
  Transmission Date: 20080405
  Serious: Yes (Other)
  Sender: FDA-Public Use
  Company Number: 2007S1010076

PATIENT
  Sex: Male

DRUGS (3)
  1. FINASTERIDE [Suspect]
     Indication: PROSTATE CANCER
     Dosage: 1 DF; DAILY; ORAL
     Route: 048
     Dates: start: 20070814, end: 20070915
  2. PROSCAR [Concomitant]
  3. XATRAL XL [Concomitant]

REACTIONS (2)
  - RENAL PAIN [None]
  - URINE ODOUR ABNORMAL [None]
